FAERS Safety Report 22056924 (Version 3)
Quarter: 2023Q1

REPORT INFORMATION
  Report Type: Spontaneous
  Country: US (occurrence: US)
  Receive Date: 20230303
  Receipt Date: 20230309
  Transmission Date: 20230417
  Serious: No
  Sender: FDA-Public Use
  Company Number: US-SANOFI-01510744

PATIENT
  Sex: Female

DRUGS (3)
  1. DUPIXENT [Suspect]
     Active Substance: DUPILUMAB
     Indication: Neurodermatitis
     Dosage: 300 MG, QOW
     Route: 030
     Dates: start: 20230117
  2. MOUNJARO [Concomitant]
     Active Substance: TIRZEPATIDE
  3. VITAMIN B12 [Concomitant]
     Active Substance: CYANOCOBALAMIN

REACTIONS (6)
  - Injection site pain [Unknown]
  - Hypoaesthesia oral [Unknown]
  - Dysphagia [Unknown]
  - Injection site swelling [Unknown]
  - Injection site bruising [Unknown]
  - Incorrect route of product administration [Unknown]

NARRATIVE: CASE EVENT DATE: 20230228
